FAERS Safety Report 15506793 (Version 1)
Quarter: 2018Q4

REPORT INFORMATION
  Report Type: Spontaneous
  Country: US (occurrence: US)
  Receive Date: 20181016
  Receipt Date: 20181016
  Transmission Date: 20190205
  Serious: No
  Sender: FDA-Public Use
  Company Number: US-TOLMAR, INC.-TOLG20180578

PATIENT
  Age: 88 Year
  Sex: Female

DRUGS (4)
  1. CALCIPOTRIENE. [Suspect]
     Active Substance: CALCIPOTRIENE
     Indication: PSORIASIS
     Dosage: UNKNOWN
     Route: 061
     Dates: start: 201809
  2. CLOBETASOL PROPIONATE. [Suspect]
     Active Substance: CLOBETASOL PROPIONATE
     Indication: PSORIASIS
     Dosage: UNKNOWN
     Route: 061
     Dates: start: 201806, end: 201808
  3. UNKNOWN MEDICATIONS FOR A FIB, HEART AND LUNG PROBLEMS [Concomitant]
     Indication: PRODUCT USED FOR UNKNOWN INDICATION
     Dosage: UNKNOWN
     Route: 065
  4. UNKNOWN MEDICATION FOR HIGH BLOOD PRESSURE [Concomitant]
     Indication: HYPERTENSION
     Dosage: UNKNOWN
     Route: 065

REACTIONS (3)
  - Skin disorder [Unknown]
  - Incorrect product administration duration [None]
  - Dandruff [Unknown]

NARRATIVE: CASE EVENT DATE: 2018
